FAERS Safety Report 9749696 (Version 6)
Quarter: 2015Q1

REPORT INFORMATION
  Report Type: Spontaneous
  Country: AU (occurrence: AU)
  Receive Date: 20131212
  Receipt Date: 20150227
  Transmission Date: 20150721
  Serious: Yes (Hospitalization, Other)
  Sender: FDA-Public Use
  Company Number: AU-ABBVIE-13P-008-1175852-00

PATIENT
  Sex: Female

DRUGS (12)
  1. HUMIRA [Suspect]
     Active Substance: ADALIMUMAB
     Route: 065
     Dates: start: 201401, end: 201402
  2. HUMIRA [Suspect]
     Active Substance: ADALIMUMAB
     Route: 065
     Dates: start: 201410
  3. HUMIRA [Suspect]
     Active Substance: ADALIMUMAB
     Route: 065
     Dates: start: 2014, end: 2014
  4. HUMIRA [Suspect]
     Active Substance: ADALIMUMAB
     Indication: CROHN^S DISEASE
     Route: 065
  5. LYRICA [Concomitant]
     Active Substance: PREGABALIN
     Indication: PRODUCT USED FOR UNKNOWN INDICATION
  6. HUMIRA [Suspect]
     Active Substance: ADALIMUMAB
     Indication: ANKYLOSING SPONDYLITIS
     Route: 065
     Dates: start: 2013
  7. METHOTREXATE [Suspect]
     Active Substance: METHOTREXATE
     Indication: PRODUCT USED FOR UNKNOWN INDICATION
     Route: 065
  8. FENTANYL. [Concomitant]
     Active Substance: FENTANYL
     Indication: PRODUCT USED FOR UNKNOWN INDICATION
  9. NUROFEN ZAVANCE [Concomitant]
     Indication: PRODUCT USED FOR UNKNOWN INDICATION
  10. INFLIXIMAB [Suspect]
     Active Substance: INFLIXIMAB
     Indication: PRODUCT USED FOR UNKNOWN INDICATION
     Route: 065
  11. HUMIRA [Suspect]
     Active Substance: ADALIMUMAB
     Indication: CROHN^S DISEASE
     Route: 065
     Dates: end: 2011
  12. HUMIRA [Suspect]
     Active Substance: ADALIMUMAB
     Indication: ANKYLOSING SPONDYLITIS

REACTIONS (36)
  - Drug hypersensitivity [Unknown]
  - Drug intolerance [Unknown]
  - Transaminases increased [Unknown]
  - Subcutaneous abscess [Unknown]
  - Infection [Unknown]
  - Gastrointestinal disorder [Unknown]
  - Pyoderma gangrenosum [Unknown]
  - Intestinal ulcer [Unknown]
  - Abdominal abscess [Unknown]
  - Wound dehiscence [Recovering/Resolving]
  - Vomiting [Unknown]
  - C-reactive protein abnormal [Unknown]
  - Small intestinal obstruction [Unknown]
  - Abdominal adhesions [Unknown]
  - Drug ineffective [Unknown]
  - Ankylosing spondylitis [Unknown]
  - Intestinal dilatation [Unknown]
  - Abdominal adhesions [Recovered/Resolved]
  - Small intestinal obstruction [Unknown]
  - Pyoderma gangrenosum [Unknown]
  - Postoperative wound complication [Unknown]
  - Ileal stenosis [Unknown]
  - Perineal ulceration [Unknown]
  - Nausea [Unknown]
  - Infection [Recovered/Resolved]
  - Crohn^s disease [Unknown]
  - Arthralgia [Unknown]
  - Weight decreased [Unknown]
  - Pyrexia [Unknown]
  - Pyoderma gangrenosum [Unknown]
  - Crohn^s disease [Unknown]
  - Postoperative wound infection [Recovering/Resolving]
  - Crohn^s disease [Unknown]
  - Skin infection [Unknown]
  - Dermatitis allergic [Unknown]
  - Gastrointestinal infection [Unknown]

NARRATIVE: CASE EVENT DATE: 2011
